FAERS Safety Report 5359839-0 (Version None)
Quarter: 2007Q2

REPORT INFORMATION
  Report Type: 
  Country: None (occurrence: None)
  Receive Date: 20070530
  Receipt Date: 20070315
  Transmission Date: 20071010
  Serious: No
  Sender: FDA-Public Use
  Company Number: 2007PV031750

PATIENT
  Age: 63 Year
  Sex: Male
  Weight: 89.3586 kg

DRUGS (3)
  1. BYETTA [Suspect]
     Indication: DIABETES MELLITUS NON-INSULIN-DEPENDENT
     Dosage: 10; 5 MCG;BID;SC
     Route: 058
     Dates: start: 20060613, end: 20060701
  2. BYETTA [Suspect]
     Indication: DIABETES MELLITUS NON-INSULIN-DEPENDENT
     Dosage: 10; 5 MCG;BID;SC
     Route: 058
     Dates: start: 20060701
  3. METFORMIN HCL [Concomitant]

REACTIONS (6)
  - ENERGY INCREASED [None]
  - GINGIVAL PAIN [None]
  - PROCEDURAL PAIN [None]
  - TOOTH DISORDER [None]
  - TOOTH INFECTION [None]
  - WEIGHT DECREASED [None]
